FAERS Safety Report 9324250 (Version 1)
Quarter: 2013Q2

REPORT INFORMATION
  Report Type: Spontaneous
  Country: GB (occurrence: GB)
  Receive Date: 20130603
  Receipt Date: 20130603
  Transmission Date: 20140414
  Serious: Yes (Other)
  Sender: FDA-Public Use
  Company Number: PHHY2013GB053348

PATIENT
  Age: 66 Year
  Sex: Male

DRUGS (6)
  1. CIPROFLOXACIN [Suspect]
     Indication: INFECTION
     Dosage: 500 MG, BID
     Dates: start: 20130216, end: 201303
  2. CO-CODAMOL [Concomitant]
  3. ATENOLOL [Concomitant]
  4. LORATADINE [Concomitant]
  5. SODIUM BICARBONATE [Concomitant]
  6. ONE-ALPHA [Concomitant]

REACTIONS (3)
  - Balance disorder [Not Recovered/Not Resolved]
  - Hearing impaired [Not Recovered/Not Resolved]
  - Headache [Unknown]
